FAERS Safety Report 14742871 (Version 1)
Quarter: 2018Q2

REPORT INFORMATION
  Report Type: Spontaneous
  Country: PT (occurrence: PT)
  Receive Date: 20180410
  Receipt Date: 20180410
  Transmission Date: 20180711
  Serious: Yes (Hospitalization)
  Sender: FDA-Public Use
  Company Number: PT-SA-2018SA090706

PATIENT
  Age: 60 Year
  Sex: Male

DRUGS (6)
  1. OXALIPLATIN. [Suspect]
     Active Substance: OXALIPLATIN
     Indication: PANCREATIC CARCINOMA METASTATIC
     Route: 065
  2. OXALIPLATIN. [Suspect]
     Active Substance: OXALIPLATIN
     Indication: PANCREATIC CARCINOMA METASTATIC
     Route: 065
  3. FOLINIC ACID [Suspect]
     Active Substance: LEUCOVORIN
     Indication: PANCREATIC CARCINOMA METASTATIC
     Route: 065
  4. FOLINIC ACID [Suspect]
     Active Substance: LEUCOVORIN
     Indication: PANCREATIC CARCINOMA METASTATIC
     Route: 065
  5. FLUOROURACIL. [Suspect]
     Active Substance: FLUOROURACIL
     Indication: PANCREATIC CARCINOMA METASTATIC
     Route: 065
  6. FLUOROURACIL. [Suspect]
     Active Substance: FLUOROURACIL
     Indication: PANCREATIC CARCINOMA METASTATIC
     Route: 065

REACTIONS (14)
  - Acute kidney injury [Recovering/Resolving]
  - Confusional state [Recovering/Resolving]
  - Peritoneal disorder [Recovering/Resolving]
  - Leukocytosis [Recovering/Resolving]
  - C-reactive protein increased [Recovering/Resolving]
  - Agitation [Recovering/Resolving]
  - Abdominal discomfort [Recovering/Resolving]
  - Large intestine perforation [Recovering/Resolving]
  - Colitis [Recovering/Resolving]
  - Pneumoperitoneum [Recovering/Resolving]
  - Hypotension [Recovering/Resolving]
  - Pyrexia [Recovering/Resolving]
  - Peritonitis [Recovering/Resolving]
  - Abdominal pain lower [Recovering/Resolving]
